FAERS Safety Report 8073991-8 (Version None)
Quarter: 2011Q4

REPORT INFORMATION
  Report Type: 
  Country: None (occurrence: None)
  Receive Date: 20111221
  Receipt Date: 20110316
  Transmission Date: 20120403
  Serious: Yes (Other)
  Sender: FDA-Public Use
  Company Number: PHHY2011US20105

PATIENT
  Age: 85 Year
  Sex: Female

DRUGS (3)
  1. EXJADE [Suspect]
     Indication: THALASSAEMIA
     Dosage: 500 MG, QD, ORAL, 500 MG, DAILY, ORAL
     Route: 048
  2. EXJADE [Suspect]
     Indication: IRON METABOLISM DISORDER
     Dosage: 500 MG, QD, ORAL, 500 MG, DAILY, ORAL
     Route: 048
  3. EXJADE [Suspect]
     Indication: IRON DEFICIENCY ANAEMIA
     Dosage: 500 MG, QD, ORAL, 500 MG, DAILY, ORAL
     Route: 048

REACTIONS (5)
  - PYREXIA [None]
  - RASH [None]
  - RASH GENERALISED [None]
  - COUGH [None]
  - WHITE BLOOD CELL COUNT DECREASED [None]
